FAERS Safety Report 19538052 (Version 8)
Quarter: 2022Q1

REPORT INFORMATION
  Report Type: Spontaneous
  Country: DE (occurrence: DE)
  Receive Date: 20210714
  Receipt Date: 20220216
  Transmission Date: 20220423
  Serious: Yes (Hospitalization, Other)
  Sender: FDA-Public Use
  Company Number: DE-ROCHE-2121184

PATIENT
  Age: 50 Year
  Sex: Female

DRUGS (39)
  1. DICLOFENAC [Suspect]
     Active Substance: DICLOFENAC
     Indication: Back pain
     Dosage: 100 MILLIGRAM, ONCE A DAY
     Route: 048
     Dates: start: 20190122
  2. DICLOFENAC [Suspect]
     Active Substance: DICLOFENAC
     Indication: Sacral pain
     Dosage: UNK (RETARD)
     Route: 054
  3. DICLOFENAC [Suspect]
     Active Substance: DICLOFENAC
     Indication: Arthralgia
  4. AMITRIPTYLINE HYDROCHLORIDE [Suspect]
     Active Substance: AMITRIPTYLINE HYDROCHLORIDE
     Indication: Depression
     Dosage: UNK UNK, ONCE A DAY (0-0-1)
     Route: 065
  5. AMITRIPTYLINE HYDROCHLORIDE [Suspect]
     Active Substance: AMITRIPTYLINE HYDROCHLORIDE
     Dosage: 50 MILLIGRAM, ONCE A DAY (0-0-1)
     Route: 065
  6. AMITRIPTYLINE HYDROCHLORIDE [Suspect]
     Active Substance: AMITRIPTYLINE HYDROCHLORIDE
     Dosage: 10 MILLIGRAM, ONCE A DAY (0-0-1)
     Route: 065
  7. OCREVUS [Suspect]
     Active Substance: OCRELIZUMAB
     Indication: Relapsing-remitting multiple sclerosis
     Dosage: 300 MILLIGRAM
     Route: 042
     Dates: start: 20180503, end: 20180503
  8. OCREVUS [Suspect]
     Active Substance: OCRELIZUMAB
     Dosage: 300 MILLIGRAM, SECOND DOSE
     Route: 042
     Dates: start: 20180517, end: 20180517
  9. OCREVUS [Suspect]
     Active Substance: OCRELIZUMAB
     Dosage: 600 MILLIGRAM, EVERY 181 DAYS
     Route: 042
     Dates: start: 20181106
  10. OCREVUS [Suspect]
     Active Substance: OCRELIZUMAB
     Dosage: UNK
     Route: 065
  11. OCREVUS [Suspect]
     Active Substance: OCRELIZUMAB
     Dosage: 600 MILLIGRAM (187 DAY)
     Route: 042
     Dates: start: 20200609
  12. OCREVUS [Suspect]
     Active Substance: OCRELIZUMAB
     Dosage: 600 MILLIGRAM
     Route: 042
     Dates: start: 20201207
  13. ASPIRIN [Concomitant]
     Active Substance: ASPIRIN
     Indication: Product used for unknown indication
     Dosage: 100 MILLIGRAM, ONCE A DAY
     Route: 048
  14. BACLOFEN [Concomitant]
     Active Substance: BACLOFEN
     Indication: Muscle spasticity
     Dosage: 75 MILLIGRAM, ONCE A DAY
     Route: 065
  15. BACLOFEN [Concomitant]
     Active Substance: BACLOFEN
     Dosage: 55 MILLIGRAM, DAILY (15 MG - 15 MG - 25 MG)
     Route: 048
  16. BACLOFEN [Concomitant]
     Active Substance: BACLOFEN
     Dosage: 50 MILLIGRAM, DAILY (10 MG - 15 MG - 25 MG)
     Route: 065
  17. BACLOFEN [Concomitant]
     Active Substance: BACLOFEN
     Dosage: 25 MILLIGRAM,0.33 DAY
     Route: 065
  18. BACLOFEN [Concomitant]
     Active Substance: BACLOFEN
     Dosage: UNK, 0.33 DAY (15 MG - 15 MG - 25 MG)
     Route: 048
  19. BACLOFEN [Concomitant]
     Active Substance: BACLOFEN
     Dosage: UNK, 0.33 DAY(10 MG - 15 MG - 25 MG)
     Route: 065
  20. BACLOFEN [Concomitant]
     Active Substance: BACLOFEN
     Dosage: 0.33 DAY (10 MG - 5 MG - 20 MG)
     Route: 065
  21. BACLOFEN [Concomitant]
     Active Substance: BACLOFEN
     Dosage: 5 MILLIGRAM, 0.33 DAY (2-2-3)
     Route: 065
  22. CARBAMAZEPINE [Concomitant]
     Active Substance: CARBAMAZEPINE
     Indication: Product used for unknown indication
     Dosage: 400 MILLIGRAM, ONCE A DAY (1-0-0)
     Route: 048
  23. CARBAMAZEPINE [Concomitant]
     Active Substance: CARBAMAZEPINE
     Dosage: 200 MILLIGRAM, TWO TIMES A DAY (2-0-1),0.5 A DAY
     Route: 065
     Dates: start: 20190801
  24. CARBAMAZEPINE [Concomitant]
     Active Substance: CARBAMAZEPINE
     Dosage: 400 MILLIGRAM, ONCE A DAY (0-1-0)
     Route: 048
  25. CHOLECALCIFEROL [Concomitant]
     Active Substance: CHOLECALCIFEROL
     Indication: Vitamin D deficiency
     Dosage: 20000 INTERNATIONAL UNIT, EVERY WEEK
     Route: 065
  26. CHOLECALCIFEROL [Concomitant]
     Active Substance: CHOLECALCIFEROL
     Dosage: 20000 INTERNATIONAL UNIT, ONCE A DAY
     Route: 065
  27. FOLIC ACID [Concomitant]
     Active Substance: FOLIC ACID
     Indication: Product used for unknown indication
     Dosage: 0.4 MILLIGRAM, ONCE A DAY
     Route: 065
  28. PANTOPRAZOLE [Concomitant]
     Active Substance: PANTOPRAZOLE
     Indication: Product used for unknown indication
     Dosage: 40 MILLIGRAM, ONCE A DAY
     Route: 048
  29. RAMIPRIL [Concomitant]
     Active Substance: RAMIPRIL
     Indication: Hypertension
     Dosage: 5 MILLIGRAM, TWO TIMES A DAY (1-0-1)
     Route: 065
  30. RAMIPRIL [Concomitant]
     Active Substance: RAMIPRIL
     Dosage: 2.5 MILLIGRAM, ONCE A DAY, (1-0-1)
     Route: 065
  31. RAMIPRIL [Concomitant]
     Active Substance: RAMIPRIL
     Dosage: 10 MILLIGRAM, TWO TIMES A DAY (1-0-1)
     Route: 065
  32. BUDESONIDE [Concomitant]
     Active Substance: BUDESONIDE
     Indication: Product used for unknown indication
     Dosage: 4 DOSAGE FORM, ONCE A DAY (2 HUBS PER DAY )
     Route: 065
  33. BUDESONIDE [Concomitant]
     Active Substance: BUDESONIDE
     Dosage: 2 DOSAGE FORM, 0.5 DAY (2 HUBS PER DAY)
     Route: 065
  34. SELENIUM [Concomitant]
     Active Substance: SELENIUM
     Indication: Product used for unknown indication
     Dosage: UNK UNK, ONCE A DAY
     Route: 065
  35. MAGNESIUM [Concomitant]
     Active Substance: MAGNESIUM
     Indication: Muscle spasms
     Dosage: 400 MILLIGRAM, ONCE A DAY
     Route: 065
  36. FOLIC ACID [Concomitant]
     Active Substance: FOLIC ACID
     Indication: Product used for unknown indication
     Dosage: 5 MILLIGRAM, ONCE A DAY
     Route: 065
  37. ACYCLOVIR [Concomitant]
     Active Substance: ACYCLOVIR
     Indication: Product used for unknown indication
     Dosage: 1-0-1 FOR FOUR WEEKS
     Route: 065
  38. ZINC [Concomitant]
     Active Substance: ZINC
     Indication: Product used for unknown indication
     Dosage: 400 MILLIGRAM
     Route: 065
  39. BOTOX [Concomitant]
     Active Substance: ONABOTULINUMTOXINA
     Indication: Product used for unknown indication
     Dosage: UNK
     Route: 065

REACTIONS (44)
  - Meniscus injury [Recovered/Resolved]
  - Spinal stenosis [Not Recovered/Not Resolved]
  - Osteoarthritis [Not Recovered/Not Resolved]
  - Insomnia [Recovered/Resolved]
  - Back pain [Recovered/Resolved]
  - Cholelithiasis [Recovered/Resolved]
  - Dizziness [Recovered/Resolved]
  - C-reactive protein increased [Recovering/Resolving]
  - Abdominal pain upper [Recovered/Resolved]
  - Infection [Recovered/Resolved]
  - Gastroenteritis norovirus [Recovered/Resolved]
  - Pruritus [Recovered/Resolved]
  - Terminal insomnia [Recovering/Resolving]
  - Paraesthesia [Recovered/Resolved]
  - Headache [Recovered/Resolved]
  - Acquired diaphragmatic eventration [Not Recovered/Not Resolved]
  - Infusion related reaction [Recovered/Resolved]
  - Dyspepsia [Not Recovered/Not Resolved]
  - Fatigue [Recovered/Resolved]
  - Dyspnoea [Not Recovered/Not Resolved]
  - Feeling abnormal [Not Recovered/Not Resolved]
  - Chest discomfort [Not Recovered/Not Resolved]
  - Nausea [Recovered/Resolved]
  - Sacral pain [Not Recovered/Not Resolved]
  - Migraine [Not Recovered/Not Resolved]
  - Rash [Recovered/Resolved]
  - Urticaria [Recovered/Resolved]
  - Multiple sclerosis [Not Recovered/Not Resolved]
  - Memory impairment [Recovered/Resolved]
  - Nasopharyngitis [Not Recovered/Not Resolved]
  - Drug ineffective [Recovered/Resolved]
  - Therapeutic product effect decreased [Recovered/Resolved]
  - Herpes virus infection [Recovered/Resolved]
  - Sleep disorder [Not Recovered/Not Resolved]
  - Skin laceration [Recovered/Resolved]
  - Muscle spasticity [Not Recovered/Not Resolved]
  - Infrapatellar fat pad inflammation [Not Recovered/Not Resolved]
  - Effusion [Not Recovered/Not Resolved]
  - Chondropathy [Not Recovered/Not Resolved]
  - Neuralgia [Recovered/Resolved]
  - Sacroiliitis [Not Recovered/Not Resolved]
  - Joint arthroplasty [Recovered/Resolved]
  - Norovirus infection [Recovered/Resolved]
  - White blood cell count decreased [Not Recovered/Not Resolved]

NARRATIVE: CASE EVENT DATE: 20180503
